FAERS Safety Report 9166947 (Version 2)
Quarter: 2013Q2

REPORT INFORMATION
  Report Type: Spontaneous
  Country: BR (occurrence: BR)
  Receive Date: 20130317
  Receipt Date: 20130508
  Transmission Date: 20140414
  Serious: Yes (Hospitalization)
  Sender: FDA-Public Use
  Company Number: BR-B.I. PHARMACEUTICALS,INC./RIDGEFIELD-2013-BR-00215BR

PATIENT
  Age: 77 Year
  Sex: Male
  Weight: 49 kg

DRUGS (4)
  1. SPIRIVA RESPIMAT [Suspect]
     Indication: EMPHYSEMA
     Dosage: 5 MCG
     Route: 055
     Dates: start: 201204
  2. AZITHROMYCIN [Concomitant]
     Indication: EMPHYSEMA
  3. SERETIDE [Concomitant]
     Indication: EMPHYSEMA
  4. DUOVENT [Concomitant]
     Indication: EMPHYSEMA

REACTIONS (2)
  - Pneumonia [Recovered/Resolved]
  - Diarrhoea [Recovered/Resolved]
